FAERS Safety Report 9251334 (Version 1)
Quarter: 2013Q1

REPORT INFORMATION
  Report Type: Spontaneous
  Country: US (occurrence: None)
  Receive Date: 20130305
  Receipt Date: 20130305
  Transmission Date: 20140127
  Serious: Yes (Other)
  Sender: FDA-Public Use
  Company Number: 163-21880-12042290

PATIENT
  Age: 66 Year
  Sex: Male
  Weight: 81.65 kg

DRUGS (12)
  1. REVLIMID [Suspect]
     Indication: PLASMA CELL MYELOMA
     Route: 048
     Dates: start: 201108
  2. VALTREX (VALACICLOVIR HYDROCHLORIDE) [Concomitant]
  3. PRILOSEC (OMEPRRAZOLE) [Concomitant]
  4. BACTRIM (BACTRIM) [Concomitant]
  5. ASA (ACETYLSALICYLIC ACID) [Concomitant]
  6. MAGNESIUM (MAGNESIUM) [Concomitant]
  7. PAXIL (PAROXETINE HYDROCHLORIDE) [Concomitant]
  8. FOLIC ACID (FOLIC ACID) [Concomitant]
  9. DEXAMETHASONE (DEXAMETHASONE) [Concomitant]
  10. GABAPENTIN (GABAPENTIN) [Concomitant]
  11. MVI (MVI) [Concomitant]
  12. ALLEGRA [Concomitant]

REACTIONS (2)
  - Platelet count decreased [None]
  - Neutrophil count decreased [None]
